FAERS Safety Report 5615044-1 (Version None)
Quarter: 2008Q1

REPORT INFORMATION
  Report Type: 
  Country: None (occurrence: None)
  Receive Date: 20080206
  Receipt Date: 20080122
  Transmission Date: 20080703
  Serious: No
  Sender: FDA-Public Use
  Company Number: US-BAXTER-2008BH000755

PATIENT
  Age: 49 Year
  Sex: Female

DRUGS (3)
  1. MORPHINE SULFATE [Suspect]
     Indication: COMPLEX REGIONAL PAIN SYNDROME
     Route: 037
  2. CLONIDINE [Concomitant]
     Indication: DRUG USE FOR UNKNOWN INDICATION
     Route: 037
  3. BUPIVACAINE [Concomitant]
     Indication: DRUG USE FOR UNKNOWN INDICATION
     Route: 037

REACTIONS (3)
  - DRUG TOXICITY [None]
  - DRUG WITHDRAWAL SYNDROME [None]
  - PAIN [None]
